FAERS Safety Report 20193049 (Version 2)
Quarter: 2022Q4

REPORT INFORMATION
  Report Type: Spontaneous
  Country: AT (occurrence: AT)
  Receive Date: 20211216
  Receipt Date: 20221004
  Transmission Date: 20230113
  Serious: Yes (Other)
  Sender: FDA-Public Use
  Company Number: AT-NOVARTISPH-NVSC2021AT286892

PATIENT
  Age: 35 Year
  Sex: Female

DRUGS (10)
  1. DABRAFENIB [Suspect]
     Active Substance: DABRAFENIB
     Indication: Malignant melanoma
     Dosage: UNK
     Route: 065
     Dates: start: 2014, end: 2017
  2. DABRAFENIB [Suspect]
     Active Substance: DABRAFENIB
     Dosage: 150 MG, BID
     Route: 065
     Dates: start: 201507, end: 201702
  3. DABRAFENIB [Suspect]
     Active Substance: DABRAFENIB
     Dosage: UNK
     Route: 065
     Dates: start: 2017, end: 2021
  4. DABRAFENIB [Suspect]
     Active Substance: DABRAFENIB
     Dosage: 150 MG, BID
     Route: 065
     Dates: start: 201706
  5. DABRAFENIB [Suspect]
     Active Substance: DABRAFENIB
     Dosage: 150 MG, BID
     Route: 065
     Dates: start: 202110
  6. TRAMETINIB [Suspect]
     Active Substance: TRAMETINIB
     Indication: Malignant melanoma
     Dosage: UNK
     Route: 065
     Dates: start: 2014, end: 2017
  7. TRAMETINIB [Suspect]
     Active Substance: TRAMETINIB
     Dosage: 2 MG, QD
     Route: 065
     Dates: start: 201507, end: 201702
  8. TRAMETINIB [Suspect]
     Active Substance: TRAMETINIB
     Dosage: UNK
     Route: 065
     Dates: start: 2017, end: 2021
  9. TRAMETINIB [Suspect]
     Active Substance: TRAMETINIB
     Dosage: 2 MG, QD
     Route: 065
     Dates: start: 201706
  10. TRAMETINIB [Suspect]
     Active Substance: TRAMETINIB
     Dosage: 2 MG, QD
     Route: 065
     Dates: start: 202110

REACTIONS (6)
  - Metastases to central nervous system [Unknown]
  - Metastases to lung [Recovered/Resolved]
  - Recurrent cancer [Unknown]
  - Metastases to bone [Unknown]
  - Soft tissue swelling [Recovering/Resolving]
  - Bone pain [Unknown]

NARRATIVE: CASE EVENT DATE: 20161101
